FAERS Safety Report 5402689-7 (Version None)
Quarter: 2007Q3

REPORT INFORMATION
  Report Type: 
  Country: None (occurrence: None)
  Receive Date: 20070801
  Receipt Date: 20070725
  Transmission Date: 20080115
  Serious: Yes (Hospitalization)
  Sender: FDA-Public Use
  Company Number: B0475975A

PATIENT
  Age: 60 Year
  Sex: Male

DRUGS (6)
  1. ZELITREX [Suspect]
     Indication: PROPHYLAXIS
     Dosage: 500MG TWICE PER DAY
     Route: 048
     Dates: start: 20070425, end: 20070527
  2. BACTRIM [Suspect]
     Indication: PROPHYLAXIS
     Dosage: 1TAB PER DAY
     Route: 048
     Dates: start: 20070425, end: 20070522
  3. CYCLOPHOSPHAMIDE [Concomitant]
     Route: 065
     Dates: start: 20070425, end: 20070430
  4. ELISOR [Concomitant]
     Dosage: 1UNIT PER DAY
     Route: 048
     Dates: end: 20070527
  5. FLUDARA [Concomitant]
     Route: 065
     Dates: start: 20070425, end: 20070430
  6. PLAVIX [Concomitant]
     Dosage: 1UNIT PER DAY
     Route: 048

REACTIONS (5)
  - PHOTOSENSITIVITY REACTION [None]
  - PURPURA [None]
  - RASH ERYTHEMATOUS [None]
  - SKIN DISORDER [None]
  - TOXIC SKIN ERUPTION [None]
